FAERS Safety Report 7756837-4 (Version None)
Quarter: 2011Q3

REPORT INFORMATION
  Report Type: 
  Country: None (occurrence: None)
  Receive Date: 20110916
  Receipt Date: 20110909
  Transmission Date: 20111222
  Serious: Yes (Other)
  Sender: FDA-Public Use
  Company Number: IT-JNJFOC-20110904031

PATIENT
  Age: 36 Year
  Sex: Male

DRUGS (1)
  1. LEVOFLOXACIN [Suspect]
     Indication: URINARY TRACT INFECTION
     Route: 048
     Dates: start: 20110831, end: 20110831

REACTIONS (4)
  - TENDON PAIN [None]
  - INITIAL INSOMNIA [None]
  - MYALGIA [None]
  - HYPOKINESIA [None]
